FAERS Safety Report 11046951 (Version 1)
Quarter: 2015Q2

REPORT INFORMATION
  Report Type: Spontaneous
  Country: AU (occurrence: None)
  Receive Date: 20150416
  Receipt Date: 20150416
  Transmission Date: 20150821
  Serious: Yes (Death, Life-Threatening)
  Sender: FDA-Public Use
  Company Number: FK201501711

PATIENT
  Age: 9 Year
  Sex: Female

DRUGS (10)
  1. TACROLIMUS (TACROLIMUS) [Suspect]
     Active Substance: TACROLIMUS
     Indication: PRODUCT USED FOR UNKNOWN INDICATION
  2. PREDNISOLONE (PREDNISOLONE) [Suspect]
     Active Substance: PREDNISOLONE
     Indication: PRODUCT USED FOR UNKNOWN INDICATION
     Route: 048
  3. MYFORTIC [Suspect]
     Active Substance: MYCOPHENOLATE SODIUM
     Indication: PRODUCT USED FOR UNKNOWN INDICATION
     Dosage: 360 MG, 2 IN 1 D, UNKNOWN AFTER MMF DISCONTINUED
  4. COTRIMOXAZOLE (BACTRIM) [Concomitant]
  5. RANITIDINE [Concomitant]
     Active Substance: RANITIDINE\RANITIDINE HYDROCHLORIDE
  6. VALAGANCICLOVIR [Concomitant]
  7. METHYLPREDNISOLONE. [Suspect]
     Active Substance: METHYLPREDNISOLONE
     Indication: PRODUCT USED FOR UNKNOWN INDICATION
  8. BASILIXIMAB [Suspect]
     Active Substance: BASILIXIMAB
     Indication: PRODUCT USED FOR UNKNOWN INDICATION
  9. MYCOPHENOLATE MOFETIL (MYCOPHENOLATE MOFETIL) [Suspect]
     Active Substance: MYCOPHENOLATE MOFETIL
     Indication: PRODUCT USED FOR UNKNOWN INDICATION
  10. NYSTATIN. [Concomitant]
     Active Substance: NYSTATIN

REACTIONS (12)
  - Gastrointestinal viral infection [None]
  - Systemic inflammatory response syndrome [None]
  - Gastritis [None]
  - Colitis erosive [None]
  - JC virus infection [None]
  - Renal impairment [None]
  - Progressive multifocal leukoencephalopathy [None]
  - Oliguria [None]
  - Erosive duodenitis [None]
  - Ileus [None]
  - Septic shock [None]
  - Cytomegalovirus infection [None]
